FAERS Safety Report 14655812 (Version 2)
Quarter: 2018Q2

REPORT INFORMATION
  Report Type: Report from Study
  Country: BR (occurrence: BR)
  Receive Date: 20180319
  Receipt Date: 20180403
  Transmission Date: 20180711
  Serious: Yes (Other)
  Sender: FDA-Public Use
  Company Number: PHHY2018BR047352

PATIENT
  Age: 62 Year
  Sex: Female
  Weight: 110 kg

DRUGS (2)
  1. ENTRESTO [Suspect]
     Active Substance: SACUBITRIL\VALSARTAN
     Indication: ATRIAL FIBRILLATION
     Dosage: 1 DF (SACUBITRIL 24 MG/ VALSARTAN 26 MG), BID
     Route: 048
     Dates: start: 201801, end: 201802
  2. ENTRESTO [Suspect]
     Active Substance: SACUBITRIL\VALSARTAN
     Indication: ARRHYTHMIA
     Dosage: 1 DF (SACUBITRIL 49 MG/ VALSARTAN 51 MG), BID
     Route: 065

REACTIONS (6)
  - Chest pain [Recovering/Resolving]
  - Angina pectoris [Recovering/Resolving]
  - Drug ineffective [Recovering/Resolving]
  - Pulmonary pain [Recovered/Resolved]
  - Cough [Unknown]
  - Product use in unapproved indication [Unknown]

NARRATIVE: CASE EVENT DATE: 201801
